FAERS Safety Report 8401355-3 (Version None)
Quarter: 2012Q2

REPORT INFORMATION
  Report Type: 
  Country: None (occurrence: None)
  Receive Date: 20120601
  Receipt Date: 20120522
  Transmission Date: 20120825
  Serious: Yes (Hospitalization, Disabling, Other)
  Sender: FDA-Public Use
  Company Number: DE-BAYER-200828599GPV

PATIENT
  Age: 69 Year
  Sex: Male
  Weight: 61 kg

DRUGS (14)
  1. LERCANIDIPINE [Concomitant]
  2. CALCIUM ACETATE [Concomitant]
  3. SEVELAMER [Concomitant]
  4. CARVEDILOL [Concomitant]
  5. CANDESARTAN CILEXETIL [Concomitant]
  6. CALCITRIOL [Concomitant]
  7. GADAVIST [Suspect]
     Indication: ANGIOGRAM
     Route: 042
     Dates: start: 20050408, end: 20050408
  8. GADAVIST [Suspect]
     Route: 042
     Dates: start: 20070612, end: 20070612
  9. MOXONIDIN [Concomitant]
  10. DIGITOXIN TAB [Concomitant]
  11. ISOSORBIDE DINITRATE [Concomitant]
  12. ATORVASTATIN CALCIUM [Concomitant]
  13. MARCUMAR [Concomitant]
  14. LEVOTHYROXINE SODIUM [Concomitant]

REACTIONS (15)
  - LYMPHOEDEMA [None]
  - SENSATION OF HEAVINESS [None]
  - SKIN FIBROSIS [None]
  - LIMB DISCOMFORT [None]
  - JOINT STIFFNESS [None]
  - MYALGIA [None]
  - PAIN IN EXTREMITY [None]
  - SCLERODERMA [None]
  - JOINT SWELLING [None]
  - SKIN DISORDER [None]
  - JOINT CONTRACTURE [None]
  - GAIT DISTURBANCE [None]
  - MYOSCLEROSIS [None]
  - NEPHROGENIC SYSTEMIC FIBROSIS [None]
  - SKIN INDURATION [None]
